FAERS Safety Report 25566712 (Version 3)
Quarter: 2025Q3

REPORT INFORMATION
  Report Type: Report from Study
  Country: US (occurrence: US)
  Receive Date: 20250716
  Receipt Date: 20250905
  Transmission Date: 20251021
  Serious: No
  Sender: SANOFI AVENTIS
  Company Number: US-SANOFI-02586259

PATIENT
  Age: 73 Year
  Sex: Male

DRUGS (3)
  1. DUPIXENT [Suspect]
     Active Substance: DUPILUMAB
     Indication: Nasal polyps
     Dosage: 300MG QOW
     Route: 058
     Dates: start: 20250603
  2. DUPIXENT [Suspect]
     Active Substance: DUPILUMAB
     Indication: Nasal polyps
  3. INTAL [Concomitant]
     Active Substance: CROMOLYN SODIUM

REACTIONS (9)
  - Influenza like illness [Recovering/Resolving]
  - Asthenia [Unknown]
  - Myalgia [Unknown]
  - Injection site warmth [Recovering/Resolving]
  - Pyrexia [Unknown]
  - Erythema [Unknown]
  - Injection site pain [Recovering/Resolving]
  - Condition aggravated [Unknown]
  - Injection site erythema [Recovering/Resolving]

NARRATIVE: CASE EVENT DATE: 20250101
